FAERS Safety Report 23964642 (Version 1)
Quarter: 2024Q2

REPORT INFORMATION
  Report Type: Spontaneous
  Country: US (occurrence: US)
  Receive Date: 20240612
  Receipt Date: 20240612
  Transmission Date: 20240716
  Serious: No
  Sender: FDA-Public Use
  Company Number: US-JNJFOC-20240616546

PATIENT
  Age: 86 Year
  Sex: Male

DRUGS (3)
  1. RYBREVANT [Suspect]
     Active Substance: AMIVANTAMAB-VMJW
     Indication: Non-small cell lung cancer metastatic
     Route: 041
     Dates: start: 20240530, end: 20240531
  2. CARBOPLATIN [Concomitant]
     Active Substance: CARBOPLATIN
     Indication: Non-small cell lung cancer metastatic
     Route: 041
     Dates: start: 20240530, end: 20240530
  3. PEMETREXED [Concomitant]
     Active Substance: PEMETREXED
     Indication: Non-small cell lung cancer metastatic
     Route: 041
     Dates: start: 20240530, end: 20240530

REACTIONS (2)
  - Stomatitis [Recovering/Resolving]
  - Rash [Recovering/Resolving]
